FAERS Safety Report 23752885 (Version 1)
Quarter: 2024Q2

REPORT INFORMATION
  Report Type: Spontaneous
  Country: US (occurrence: US)
  Receive Date: 20240417
  Receipt Date: 20240417
  Transmission Date: 20240716
  Serious: Yes (Hospitalization)
  Sender: FDA-Public Use
  Company Number: US-E2BLSMVVAL-SPO/USA/24/0005692

PATIENT
  Age: 63 Year
  Sex: Male

DRUGS (1)
  1. VIGABATRIN [Suspect]
     Active Substance: VIGABATRIN
     Indication: Product used for unknown indication
     Route: 048

REACTIONS (1)
  - Hospitalisation [Unknown]
